FAERS Safety Report 7341192-4 (Version None)
Quarter: 2011Q1

REPORT INFORMATION
  Report Type: 
  Country: None (occurrence: None)
  Receive Date: 20110309
  Receipt Date: 20110228
  Transmission Date: 20110831
  Serious: Yes (Other)
  Sender: FDA-Public Use
  Company Number: B0704714A

PATIENT
  Age: 24 Year
  Sex: Female

DRUGS (1)
  1. ALBUTEROL [Suspect]
     Route: 055

REACTIONS (1)
  - VENTRICULAR TACHYCARDIA [None]
